FAERS Safety Report 11232554 (Version 1)
Quarter: 2015Q3

REPORT INFORMATION
  Report Type: Spontaneous
  Country: US (occurrence: US)
  Receive Date: 20150701
  Receipt Date: 20150701
  Transmission Date: 20151125
  Serious: No
  Sender: FDA-Public Use
  Company Number: US-GLAXOSMITHKLINE-US2015091296

PATIENT
  Sex: Female

DRUGS (7)
  1. ADVAIR DISKUS [Suspect]
     Active Substance: FLUTICASONE PROPIONATE\SALMETEROL XINAFOATE
     Indication: CHRONIC OBSTRUCTIVE PULMONARY DISEASE
     Dosage: 1 PUFF(S), BID
     Route: 055
  2. HYDROCHLOROTHIAZIDE AND LISINOPRIL [Concomitant]
     Active Substance: HYDROCHLOROTHIAZIDE\LISINOPRIL
  3. NASONEX [Concomitant]
     Active Substance: MOMETASONE FUROATE
  4. SUDAFED [Concomitant]
     Active Substance: PSEUDOEPHEDRINE HYDROCHLORIDE
  5. ADVAIR DISKUS [Suspect]
     Active Substance: FLUTICASONE PROPIONATE\SALMETEROL XINAFOATE
     Indication: ASTHMA
  6. PRIMIDONE. [Concomitant]
     Active Substance: PRIMIDONE
  7. BLOOD PRESSURE MEDICATION [Suspect]
     Active Substance: UNSPECIFIED INGREDIENT

REACTIONS (9)
  - Arthralgia [Not Recovered/Not Resolved]
  - Neuropathy peripheral [Unknown]
  - Intervertebral disc degeneration [Not Recovered/Not Resolved]
  - Hypoaesthesia [Not Recovered/Not Resolved]
  - Intervertebral disc protrusion [Not Recovered/Not Resolved]
  - Peripheral swelling [Recovered/Resolved]
  - Gait disturbance [Not Recovered/Not Resolved]
  - Nerve compression [Not Recovered/Not Resolved]
  - Paraesthesia [Not Recovered/Not Resolved]
